FAERS Safety Report 17085986 (Version 1)
Quarter: 2019Q4

REPORT INFORMATION
  Report Type: Spontaneous
  Country: US (occurrence: US)
  Receive Date: 20191127
  Receipt Date: 20191127
  Transmission Date: 20200122
  Serious: Yes (Hospitalization)
  Sender: FDA-Public Use
  Company Number: None

PATIENT
  Age: 64 Year
  Sex: Male
  Weight: 108 kg

DRUGS (3)
  1. AMLODIPINE-BENAZEPRIL (LOTREL) [Concomitant]
  2. ASPIRIN. [Concomitant]
     Active Substance: ASPIRIN
  3. TECENTRIQ [Suspect]
     Active Substance: ATEZOLIZUMAB
     Indication: LUNG CARCINOMA CELL TYPE UNSPECIFIED STAGE IV
     Dosage: ?          OTHER FREQUENCY:EVERY 21 DAYS;?
     Dates: start: 20191022, end: 20191112

REACTIONS (8)
  - Chest discomfort [None]
  - Dizziness [None]
  - Hyperhidrosis [None]
  - Syncope [None]
  - Nausea [None]
  - Respiratory distress [None]
  - Dyspnoea [None]
  - Hypotension [None]

NARRATIVE: CASE EVENT DATE: 20191112
